FAERS Safety Report 6099130-0 (Version None)
Quarter: 2009Q1

REPORT INFORMATION
  Report Type: 
  Country: None (occurrence: None)
  Receive Date: 20090302
  Receipt Date: 20090225
  Transmission Date: 20090719
  Serious: No
  Sender: FDA-Public Use
  Company Number: US-B.I. PHARMACEUTICALS,INC./RIDGEFIELD-2009-BP-02320BP

PATIENT
  Age: 70 Year
  Sex: Male

DRUGS (3)
  1. SPIRIVA [Suspect]
     Indication: CHRONIC OBSTRUCTIVE PULMONARY DISEASE
     Dosage: 18MCG
     Route: 055
     Dates: start: 20090211
  2. AVODART [Concomitant]
     Indication: PROSTATIC DISORDER
     Dates: start: 20080501
  3. DILANTIN [Concomitant]
     Indication: CONVULSION
     Dates: start: 20050101

REACTIONS (5)
  - DIZZINESS [None]
  - DRY MOUTH [None]
  - FALL [None]
  - INAPPROPRIATE SCHEDULE OF DRUG ADMINISTRATION [None]
  - SKIN LACERATION [None]
